FAERS Safety Report 8709158 (Version 2)
Quarter: 2012Q4

REPORT INFORMATION
  Report Type: Spontaneous
  Country: US (occurrence: None)
  Receive Date: 20120720
  Receipt Date: 20120827
  Transmission Date: 20130627
  Serious: Yes (Hospitalization, Other)
  Sender: FDA-Public Use
  Company Number: 2012P1047553

PATIENT
  Age: 51 Year
  Sex: Female
  Weight: 67.13 kg

DRUGS (5)
  1. METHYLPREDNISOLONE [Suspect]
     Indication: ASTHMA
     Dates: start: 2009, end: 201204
  2. METHYLPREDNISOLONE [Suspect]
     Indication: PERFUME SENSITIVITY
     Dates: start: 2009, end: 201204
  3. QVAR [Concomitant]
  4. EPIPEN [Concomitant]
  5. VITAMIN D WITH CALCIUM [Concomitant]

REACTIONS (5)
  - Gastrointestinal disorder [None]
  - Irritable bowel syndrome [None]
  - Stress [None]
  - Hepatic steatosis [None]
  - Asthma [None]
